FAERS Safety Report 7068822-9 (Version None)
Quarter: 2010Q4

REPORT INFORMATION
  Report Type: 
  Country: None (occurrence: None)
  Receive Date: 20101028
  Receipt Date: 20101021
  Transmission Date: 20110411
  Serious: Yes (Hospitalization)
  Sender: FDA-Public Use
  Company Number: CH-MERCK-1010USA02518

PATIENT
  Age: 65 Year
  Sex: Male
  Weight: 68 kg

DRUGS (21)
  1. CANCIDAS [Suspect]
     Indication: BACTERIAL INFECTION
     Route: 042
     Dates: start: 20100902, end: 20100908
  2. CANCIDAS [Suspect]
     Route: 042
     Dates: start: 20100922, end: 20100928
  3. CANCIDAS [Suspect]
     Indication: FUNGAL INFECTION
     Route: 042
     Dates: start: 20100902, end: 20100908
  4. CANCIDAS [Suspect]
     Route: 042
     Dates: start: 20100922, end: 20100928
  5. SPORANOX [Suspect]
     Indication: BACTERIAL INFECTION
     Route: 048
     Dates: end: 20100909
  6. SPORANOX [Suspect]
     Indication: FUNGAL INFECTION
     Route: 048
     Dates: end: 20100909
  7. PIPERACILLIN AND TAZOBACTAM [Concomitant]
     Indication: BACTERIAL INFECTION
     Route: 065
     Dates: start: 20100902, end: 20100908
  8. PIPERACILLIN AND TAZOBACTAM [Concomitant]
     Indication: FUNGAL INFECTION
     Route: 065
     Dates: start: 20100902, end: 20100908
  9. BACTRIM [Concomitant]
     Route: 065
  10. METOPROLOL SUCCINATE [Concomitant]
     Route: 065
     Dates: end: 20100908
  11. CALCIMAGON D3 [Concomitant]
     Route: 065
  12. CELLCEPT [Concomitant]
     Route: 065
     Dates: end: 20100909
  13. FLAGYL [Concomitant]
     Route: 065
     Dates: end: 20100908
  14. MARCUMAR [Concomitant]
     Route: 065
  15. MOTILIUM [Concomitant]
     Route: 065
  16. PREDNISONE [Concomitant]
     Route: 065
  17. SANDIMMUNE [Concomitant]
     Route: 065
  18. VALCYTE [Concomitant]
     Route: 065
  19. ZOLOFT [Concomitant]
     Route: 065
  20. OBRACINE [Concomitant]
     Route: 055
  21. MAGNESIOCARD [Concomitant]
     Route: 065

REACTIONS (1)
  - HEPATOCELLULAR INJURY [None]
